FAERS Safety Report 13688178 (Version 1)
Quarter: 2017Q2

REPORT INFORMATION
  Report Type: Spontaneous
  Country: ES (occurrence: ES)
  Receive Date: 20170626
  Receipt Date: 20170626
  Transmission Date: 20170830
  Serious: Yes (Other)
  Sender: FDA-Public Use
  Company Number: ES-B.I. PHARMACEUTICALS,INC./RIDGEFIELD-2017-BI-034757

PATIENT
  Age: 73 Year
  Sex: Male
  Weight: 76 kg

DRUGS (1)
  1. SYNJARDY [Suspect]
     Active Substance: EMPAGLIFLOZIN\METFORMIN HYDROCHLORIDE
     Indication: TYPE 2 DIABETES MELLITUS
     Dosage: FORM STRENGTH/UNIT DOSE: 12.5MG/1000MG; DAILY DOSE: 15MG/2000MG
     Route: 048
     Dates: start: 20170404, end: 20170519

REACTIONS (2)
  - Extremity necrosis [Not Recovered/Not Resolved]
  - Leriche syndrome [Not Recovered/Not Resolved]

NARRATIVE: CASE EVENT DATE: 20170519
